FAERS Safety Report 10402048 (Version 1)
Quarter: 2014Q3

REPORT INFORMATION
  Report Type: Spontaneous
  Country: CN (occurrence: CN)
  Receive Date: 20140822
  Receipt Date: 20140822
  Transmission Date: 20150326
  Serious: Yes (Hospitalization, Other)
  Sender: FDA-Public Use
  Company Number: CN-MYLAN-2014M1002055

PATIENT

DRUGS (4)
  1. CLOZAPINE. [Suspect]
     Active Substance: CLOZAPINE
     Indication: OFF LABEL USE
     Dosage: 800 MG, Q8H
     Route: 065
  2. TRIHEXYPHENIDYL [Concomitant]
     Active Substance: TRIHEXYPHENIDYL
     Dosage: 8MG DAILY
     Route: 065
  3. CLOZAPINE. [Suspect]
     Active Substance: CLOZAPINE
     Indication: DEPRESSION
     Route: 065
  4. ESTAZOLAM. [Concomitant]
     Active Substance: ESTAZOLAM
     Dosage: 2MG DAILY
     Route: 065

REACTIONS (10)
  - Toxicity to various agents [Recovered/Resolved]
  - Intestinal dilatation [None]
  - Tremor [Unknown]
  - Flatulence [Unknown]
  - Neuroleptic malignant syndrome [Recovered/Resolved]
  - No therapeutic response [None]
  - Overdose [Recovered/Resolved]
  - Loss of consciousness [None]
  - Pneumonia [None]
  - Hypertonia [None]
